FAERS Safety Report 6288378-8 (Version None)
Quarter: 2009Q3

REPORT INFORMATION
  Report Type: 
  Country: None (occurrence: None)
  Receive Date: 20090729
  Receipt Date: 20090727
  Transmission Date: 20100115
  Serious: Yes (Life-Threatening, Hospitalization)
  Sender: FDA-Public Use
  Company Number: US-KINGPHARMUSA00001-K200900885

PATIENT
  Age: 78 Year
  Sex: Female

DRUGS (6)
  1. ALTACE [Suspect]
     Dosage: 10 MG, QD
     Route: 048
     Dates: end: 20090525
  2. LASIX [Suspect]
     Dosage: 250 MG, QD
     Route: 048
     Dates: end: 20090525
  3. ESIDRIX [Suspect]
     Dosage: 12.5 MG, QD
     Route: 048
     Dates: end: 20090525
  4. PREVISCAN [Concomitant]
     Route: 048
  5. DETENSIEL [Concomitant]
     Route: 048
  6. EBIXA [Concomitant]
     Route: 048

REACTIONS (4)
  - DIARRHOEA [None]
  - HYPERKALAEMIA [None]
  - HYPOVOLAEMIC SHOCK [None]
  - RENAL FAILURE [None]
